FAERS Safety Report 6474637-2 (Version None)
Quarter: 2009Q4

REPORT INFORMATION
  Report Type: 
  Country: None (occurrence: None)
  Receive Date: 20091201
  Receipt Date: 20091101
  Transmission Date: 20100525
  Serious: Yes (Life-Threatening)
  Sender: FDA-Public Use
  Company Number: 2009-4812

PATIENT
  Age: 26 Year
  Sex: Female

DRUGS (5)
  1. DYSPORT [Suspect]
     Indication: MUSCLE SPASTICITY
     Dosage: (1900 UNITS, SINGLE CYCLE)
     Dates: start: 20040328, end: 20040328
  2. BACLOFEN [Concomitant]
  3. TRIHEXIPHENIDIN (ARTENE) (TRIHEXYPHENIDYL HYDROCHLORIDE) [Concomitant]
  4. LORAZEPAM [Concomitant]
  5. MUSAPAM (ALL OTHER THERAPEUTIC PRODUCTS) [Concomitant]

REACTIONS (5)
  - BOTULISM [None]
  - DYSPHAGIA [None]
  - NEUROMUSCULAR TOXICITY [None]
  - OVERDOSE [None]
  - PNEUMONIA ASPIRATION [None]
